FAERS Safety Report 15407797 (Version 3)
Quarter: 2019Q2

REPORT INFORMATION
  Report Type: Report from Study
  Country: GB (occurrence: GB)
  Receive Date: 20180920
  Receipt Date: 20190401
  Transmission Date: 20190711
  Serious: Yes (Other)
  Sender: FDA-Public Use
  Company Number: GB-PFIZER INC-2018374165

PATIENT
  Sex: Female

DRUGS (32)
  1. ZOMORPH [Concomitant]
     Active Substance: MORPHINE SULFATE
     Dosage: 20 MG, 1X/DAY
     Route: 048
     Dates: start: 20160311
  2. PEGFILGRASTIM [Concomitant]
     Active Substance: PEGFILGRASTIM
     Dosage: 6 MG, UNK
     Route: 058
     Dates: start: 20160302
  3. CALCICHEW D3 FORTE [Concomitant]
     Active Substance: CALCIUM\CHOLECALCIFEROL
     Dosage: 2 DF, 1X/DAY
     Route: 048
     Dates: start: 20160225
  4. TRASTUZUMAB. [Suspect]
     Active Substance: TRASTUZUMAB
     Indication: HER-2 POSITIVE BREAST CANCER
     Dosage: 900 MG, SINGLE LOADING DOSE
     Route: 042
     Dates: start: 20160303, end: 20160303
  5. LIDOCAINE. [Concomitant]
     Active Substance: LIDOCAINE
     Dosage: 700 MG, 1X/DAY
     Route: 062
     Dates: start: 20160307
  6. METFORMIN [Concomitant]
     Active Substance: METFORMIN HYDROCHLORIDE
     Dosage: 850 MG, UNK
     Route: 048
  7. DOCETAXEL. [Suspect]
     Active Substance: DOCETAXEL
     Indication: HER-2 POSITIVE BREAST CANCER
     Dosage: 148 MG, EVERY 3 WEEKS
     Route: 042
     Dates: start: 20160304
  8. ANUSOL HC [HYDROCORTISONE ACETATE] [Concomitant]
     Dosage: 3 UNK, 1X/DAY
     Route: 061
     Dates: start: 20160324
  9. PREGABALIN. [Concomitant]
     Active Substance: PREGABALIN
     Dosage: 150 MG, 1X/DAY
     Route: 048
     Dates: start: 20160307, end: 20170516
  10. PREGABALIN. [Concomitant]
     Active Substance: PREGABALIN
     Dosage: 450 MG, 1X/DAY
     Dates: start: 20170516
  11. ORAMORPH [Concomitant]
     Active Substance: MORPHINE SULFATE
     Dosage: 10 MG, UNK
     Route: 048
  12. APIXABAN [Concomitant]
     Active Substance: APIXABAN
     Indication: ACETABULUM FRACTURE
     Dosage: 5 MG, 1X/DAY
     Route: 048
     Dates: start: 20170512
  13. DICLOFENAC SODIUM. [Concomitant]
     Active Substance: DICLOFENAC SODIUM
     Dosage: 1 %, UNK
     Route: 061
     Dates: start: 20161220
  14. TRASTUZUMAB. [Suspect]
     Active Substance: TRASTUZUMAB
     Dosage: 675 MG, EVERY 3 WEEKS (MAINTENANCE DOSE )
     Dates: start: 20160324
  15. NAPROXEN. [Concomitant]
     Active Substance: NAPROXEN
     Dosage: 1500 MG, 1X/DAY
     Route: 048
  16. PARACETAMOL [Concomitant]
     Active Substance: ACETAMINOPHEN
     Dosage: 3 G, 1X/DAY
     Route: 048
     Dates: start: 20160316, end: 20160415
  17. IBUPROFEN. [Concomitant]
     Active Substance: IBUPROFEN
     Dosage: 1600 MG, 1X/DAY
     Route: 048
  18. AMITRIPTYLINE HYDROCHLORIDE. [Concomitant]
     Active Substance: AMITRIPTYLINE HYDROCHLORIDE
     Indication: ACETABULUM FRACTURE
     Dosage: 10 MG, UNK
     Route: 048
     Dates: start: 20170522
  19. CODEINE PHOSPHATE [Concomitant]
     Active Substance: CODEINE PHOSPHATE
     Dosage: 90 MG, 1X/DAY
     Route: 048
     Dates: start: 20160912
  20. DENOSUMAB [Concomitant]
     Active Substance: DENOSUMAB
     Indication: BONE DISORDER
     Dosage: 120 MG, UNK (1 MINUTE)
     Route: 058
     Dates: start: 20160226
  21. LANSOPRAZOLE. [Concomitant]
     Active Substance: LANSOPRAZOLE
     Indication: PROPHYLAXIS
     Dosage: 30 UG, UNK
     Route: 048
     Dates: start: 20160324
  22. DOMPERIDONE [Concomitant]
     Active Substance: DOMPERIDONE
     Dosage: 10 MG, UNK
     Route: 048
     Dates: start: 20160302
  23. PERTUZUMAB. [Suspect]
     Active Substance: PERTUZUMAB
     Dosage: 420 MG, EVERY 3 WEEKS (MAINTENANCE DOSE)
     Route: 042
     Dates: start: 20160324
  24. LOPERAMIDE [Concomitant]
     Active Substance: LOPERAMIDE
     Dosage: 2 MG, UNK
     Route: 048
     Dates: start: 20160302
  25. OXYCODONE [Concomitant]
     Active Substance: OXYCODONE
     Dosage: 10 MG, UNK
     Route: 048
     Dates: start: 20170512
  26. OXYCODONE [Concomitant]
     Active Substance: OXYCODONE
     Dosage: 15 MG, UNK
     Dates: start: 20170512
  27. COCODAMOL [Concomitant]
     Active Substance: ACETAMINOPHEN\CODEINE PHOSPHATE
     Dosage: 120 MG, 1X/DAY
     Route: 048
     Dates: end: 201603
  28. PERTUZUMAB. [Suspect]
     Active Substance: PERTUZUMAB
     Indication: BREAST CANCER METASTATIC
     Dosage: 840 MG, SINGLE LOADING DOSE
     Route: 042
     Dates: start: 20160303, end: 20160303
  29. LOSARTAN POTASSIUM. [Concomitant]
     Active Substance: LOSARTAN POTASSIUM
     Dosage: 50 MG, 1X/DAY
     Route: 048
     Dates: start: 20160506
  30. CHLORHEXIDINE HYDROCHLORIDE/NEOMYCIN SULFATE [Concomitant]
     Dosage: 2 UNK, 1X/DAY
     Route: 061
     Dates: start: 20160324
  31. LEVOMENTHOL [Concomitant]
     Active Substance: LEVOMENTHOL
     Dosage: 6 %, 1X/DAY
     Route: 061
     Dates: start: 20160307
  32. DEXAMETHASONE. [Concomitant]
     Active Substance: DEXAMETHASONE
     Dosage: 16 MG, 1X/DAY
     Route: 048
     Dates: start: 20160302

REACTIONS (10)
  - Dysuria [Recovered/Resolved]
  - Hypokalaemia [Not Recovered/Not Resolved]
  - Sciatica [Not Recovered/Not Resolved]
  - Localised infection [Not Recovered/Not Resolved]
  - Neuropathy peripheral [Not Recovered/Not Resolved]
  - Anaemia [Recovering/Resolving]
  - Nail bed tenderness [Recovered/Resolved]
  - Fatigue [Recovered/Resolved]
  - Diarrhoea [Recovered/Resolved]
  - Skin discolouration [Not Recovered/Not Resolved]

NARRATIVE: CASE EVENT DATE: 20160315
